FAERS Safety Report 12699562 (Version 1)
Quarter: 2016Q3

REPORT INFORMATION
  Report Type: Spontaneous
  Country: US (occurrence: US)
  Receive Date: 20160830
  Receipt Date: 20160830
  Transmission Date: 20161109
  Serious: No
  Sender: FDA-Public Use
  Company Number: US-TEVA-687679USA

PATIENT
  Sex: Female

DRUGS (2)
  1. AFTERA [Concomitant]
     Active Substance: LEVONORGESTREL
  2. SEASONIQUE [Suspect]
     Active Substance: ETHINYL ESTRADIOL\LEVONORGESTREL
     Indication: CONTRACEPTION
     Route: 065

REACTIONS (4)
  - Abdominal pain [Unknown]
  - Uterine leiomyoma [Unknown]
  - Menstruation delayed [Unknown]
  - Abdominal pain upper [Unknown]

NARRATIVE: CASE EVENT DATE: 20160718
